FAERS Safety Report 9711207 (Version 2)
Quarter: 2013Q4

REPORT INFORMATION
  Report Type: Spontaneous
  Country: US (occurrence: US)
  Receive Date: 20131126
  Receipt Date: 20131126
  Transmission Date: 20140711
  Serious: No
  Sender: FDA-Public Use
  Company Number: US-BRISTOL-MYERS SQUIBB COMPANY-18737296

PATIENT
  Age: 63 Year
  Sex: Female

DRUGS (3)
  1. BYDUREON 2MG SUSPENSION [Suspect]
     Indication: TYPE 2 DIABETES MELLITUS
     Dosage: 7TH INJECTION ON 31MAR13
     Dates: start: 201302
  2. METFORMIN HCL [Suspect]
     Route: 048
  3. AMARYL [Concomitant]
     Route: 048

REACTIONS (3)
  - Injection site nodule [Recovering/Resolving]
  - Blood glucose increased [Not Recovered/Not Resolved]
  - Injection site pruritus [Not Recovered/Not Resolved]
